FAERS Safety Report 7739977-5 (Version None)
Quarter: 2011Q3

REPORT INFORMATION
  Report Type: 
  Country: None (occurrence: None)
  Receive Date: 20110906
  Receipt Date: 20110830
  Transmission Date: 20111222
  Serious: Yes (Death, Hospitalization)
  Sender: FDA-Public Use
  Company Number: MTX-11-13

PATIENT
  Age: 5 Year
  Sex: Male

DRUGS (6)
  1. CYCLOPHOSPHAMIDE [Concomitant]
  2. ETOPOSIDE [Concomitant]
  3. CYTARABINE [Concomitant]
  4. EPIRUBICIN [Concomitant]
  5. VINCRISTINE [Concomitant]
  6. METHOTREXATE [Suspect]
     Indication: BURKITT'S LYMPHOMA
     Dosage: 6G/M2

REACTIONS (7)
  - QRS AXIS ABNORMAL [None]
  - TRICUSPID VALVE INCOMPETENCE [None]
  - CARDIAC FAILURE [None]
  - TOXIC EPIDERMAL NECROLYSIS [None]
  - PLEURAL EFFUSION [None]
  - PULMONARY VENO-OCCLUSIVE DISEASE [None]
  - PULMONARY HYPERTENSION [None]
